FAERS Safety Report 24671142 (Version 1)
Quarter: 2024Q4

REPORT INFORMATION
  Report Type: Report from Study
  Country: FR (occurrence: FR)
  Receive Date: 20241127
  Receipt Date: 20241127
  Transmission Date: 20250114
  Serious: Yes (Other)
  Sender: MYLAN
  Company Number: FR-SA-SAC20220318000689

PATIENT
  Age: 66 Year
  Sex: Female
  Weight: 57.5 kg

DRUGS (61)
  1. POMALIDOMIDE [Suspect]
     Active Substance: POMALIDOMIDE
     Indication: Plasma cell myeloma refractory
     Dosage: 4 MILLIGRAM, QD
     Route: 065
     Dates: start: 20220316, end: 20220405
  2. POMALIDOMIDE [Suspect]
     Active Substance: POMALIDOMIDE
     Dosage: 4 MILLIGRAM, QD
     Route: 065
     Dates: start: 20220413, end: 20220503
  3. POMALIDOMIDE [Suspect]
     Active Substance: POMALIDOMIDE
     Dosage: 3 MILLIGRAM, QD
     Route: 065
     Dates: start: 20220512, end: 20220601
  4. POMALIDOMIDE [Suspect]
     Active Substance: POMALIDOMIDE
     Dosage: 3 MILLIGRAM, QD
     Route: 065
     Dates: start: 20220610, end: 20220707
  5. POMALIDOMIDE [Suspect]
     Active Substance: POMALIDOMIDE
     Dosage: 2 MILLIGRAM, QD
     Route: 065
     Dates: start: 20220708, end: 20220728
  6. POMALIDOMIDE [Suspect]
     Active Substance: POMALIDOMIDE
     Dosage: 2 MILLIGRAM, QD
     Route: 065
     Dates: start: 20220805, end: 20220825
  7. POMALIDOMIDE [Suspect]
     Active Substance: POMALIDOMIDE
     Dosage: 2 MILLIGRAM, QD
     Route: 065
     Dates: start: 20220902, end: 20220915
  8. POMALIDOMIDE [Suspect]
     Active Substance: POMALIDOMIDE
     Dosage: 2 MILLIGRAM, QD
     Route: 065
     Dates: start: 20220921, end: 20220927
  9. POMALIDOMIDE [Suspect]
     Active Substance: POMALIDOMIDE
     Dosage: 2 MILLIGRAM, QD
     Route: 065
     Dates: start: 20221005, end: 20221025
  10. POMALIDOMIDE [Suspect]
     Active Substance: POMALIDOMIDE
     Dosage: 2 MILLIGRAM, QD
     Route: 065
     Dates: start: 20221109, end: 20221129
  11. POMALIDOMIDE [Suspect]
     Active Substance: POMALIDOMIDE
     Dosage: 2 MILLIGRAM, QD
     Route: 065
     Dates: start: 20221207, end: 20221227
  12. POMALIDOMIDE [Suspect]
     Active Substance: POMALIDOMIDE
     Dosage: 2 MILLIGRAM, QD
     Route: 065
     Dates: start: 20230104, end: 20230124
  13. POMALIDOMIDE [Suspect]
     Active Substance: POMALIDOMIDE
     Dosage: 2 MILLIGRAM, QD
     Route: 065
     Dates: start: 20230201, end: 20230221
  14. POMALIDOMIDE [Suspect]
     Active Substance: POMALIDOMIDE
     Dosage: 2 MILLIGRAM, QD
     Route: 065
     Dates: start: 20230405, end: 20230425
  15. POMALIDOMIDE [Suspect]
     Active Substance: POMALIDOMIDE
     Dosage: 2 MILLIGRAM, QD
     Route: 065
     Dates: start: 20230726, end: 20230826
  16. POMALIDOMIDE [Suspect]
     Active Substance: POMALIDOMIDE
     Dosage: 2 MILLIGRAM, QD
     Route: 065
     Dates: start: 20230301, end: 20230322
  17. DEXAMETHASONE [Suspect]
     Active Substance: DEXAMETHASONE
     Indication: Plasma cell myeloma refractory
     Dosage: 40 MILLIGRAM, QW
     Route: 065
     Dates: start: 20220316, end: 20220407
  18. DEXAMETHASONE [Suspect]
     Active Substance: DEXAMETHASONE
     Dosage: 6 MILLIGRAM, QW
     Route: 065
     Dates: start: 20220408, end: 20220412
  19. DEXAMETHASONE [Suspect]
     Active Substance: DEXAMETHASONE
     Dosage: 40 MILLIGRAM, QW (20 MG, BIW)
     Route: 065
     Dates: start: 20220413, end: 20220427
  20. DEXAMETHASONE [Suspect]
     Active Substance: DEXAMETHASONE
     Dosage: 80 MILLIGRAM, QW (40 MG, BIW)
     Route: 065
     Dates: start: 20220428, end: 20220511
  21. DEXAMETHASONE [Suspect]
     Active Substance: DEXAMETHASONE
     Dosage: 40 MILLIGRAM, QW (20 MG, BIW)
     Route: 065
     Dates: start: 20220512, end: 20220609
  22. DEXAMETHASONE [Suspect]
     Active Substance: DEXAMETHASONE
     Dosage: 40 MILLIGRAM, QW (20 MG, BIW)
     Route: 065
     Dates: start: 20220610, end: 20220707
  23. DEXAMETHASONE [Suspect]
     Active Substance: DEXAMETHASONE
     Dosage: 40 MILLIGRAM, QW (20 MG, BIW)
     Route: 065
     Dates: start: 20220708, end: 20220728
  24. DEXAMETHASONE [Suspect]
     Active Substance: DEXAMETHASONE
     Dosage: 40 MILLIGRAM, QW (20 MG, BIW)
     Route: 065
     Dates: start: 20220805, end: 20220901
  25. DEXAMETHASONE [Suspect]
     Active Substance: DEXAMETHASONE
     Dosage: 40 MILLIGRAM, QW (20 MG, BIW)
     Route: 065
     Dates: start: 20220902, end: 20220915
  26. DEXAMETHASONE [Suspect]
     Active Substance: DEXAMETHASONE
     Dosage: 40 MILLIGRAM, QW (20 MG, BIW)
     Route: 065
     Dates: start: 20220921, end: 20221004
  27. DEXAMETHASONE [Suspect]
     Active Substance: DEXAMETHASONE
     Dosage: 40 MILLIGRAM, QW (20 MG, BIW)
     Route: 065
     Dates: start: 20221005, end: 20221101
  28. DEXAMETHASONE [Suspect]
     Active Substance: DEXAMETHASONE
     Dosage: 40 MILLIGRAM, QW (20 MG, BIW)
     Route: 065
     Dates: start: 20221109, end: 20221206
  29. DEXAMETHASONE [Suspect]
     Active Substance: DEXAMETHASONE
     Dosage: 40 MILLIGRAM, QW (20 MG, BIW)
     Route: 065
     Dates: start: 20221207, end: 20230103
  30. DEXAMETHASONE [Suspect]
     Active Substance: DEXAMETHASONE
     Dosage: 40 MILLIGRAM, QW (20 MG, BIW)
     Route: 065
     Dates: start: 20230201, end: 20230228
  31. DEXAMETHASONE [Suspect]
     Active Substance: DEXAMETHASONE
     Dosage: 40 MILLIGRAM, QW (20 MG, BIW)
     Route: 065
     Dates: start: 20230301, end: 20230314
  32. DEXAMETHASONE [Suspect]
     Active Substance: DEXAMETHASONE
     Dosage: 20 MILLIGRAM, QW (10 MG, BIW)
     Route: 065
     Dates: start: 20230315, end: 20230328
  33. DEXAMETHASONE [Suspect]
     Active Substance: DEXAMETHASONE
     Dosage: 40 MILLIGRAM, QW (20 MG, BIW)
     Route: 065
     Dates: start: 20230405, end: 20230502
  34. DEXAMETHASONE [Suspect]
     Active Substance: DEXAMETHASONE
     Dosage: 40 MILLIGRAM, QW (20 MG, BIW)
     Route: 065
     Dates: start: 20230104, end: 20230131
  35. ISATUXIMAB [Suspect]
     Active Substance: ISATUXIMAB
     Indication: Plasma cell myeloma refractory
     Dosage: 10 MILLIGRAM/KILOGRAM, QW
     Route: 065
     Dates: start: 20220316, end: 20220412
  36. ISATUXIMAB [Suspect]
     Active Substance: ISATUXIMAB
     Dosage: 20 MILLIGRAM/KILOGRAM, QW (10 MG/KG, BIW)
     Route: 065
     Dates: start: 20220413, end: 20220511
  37. ISATUXIMAB [Suspect]
     Active Substance: ISATUXIMAB
     Dosage: 20 MILLIGRAM/KILOGRAM, QW (10 MG/KG, BIW)
     Route: 065
     Dates: start: 20220512, end: 20220609
  38. ISATUXIMAB [Suspect]
     Active Substance: ISATUXIMAB
     Dosage: 20 MILLIGRAM/KILOGRAM, QW (10 MG/KG, BIW)
     Route: 065
     Dates: start: 20220610, end: 20220707
  39. ISATUXIMAB [Suspect]
     Active Substance: ISATUXIMAB
     Dosage: 20 MILLIGRAM/KILOGRAM, QW (10 MG/KG, BIW)
     Route: 065
     Dates: start: 20220708, end: 20220804
  40. ISATUXIMAB [Suspect]
     Active Substance: ISATUXIMAB
     Dosage: 20 MILLIGRAM/KILOGRAM, QW (10 MG/KG, BIW)
     Route: 065
     Dates: start: 20220805, end: 20220901
  41. ISATUXIMAB [Suspect]
     Active Substance: ISATUXIMAB
     Dosage: 20 MILLIGRAM/KILOGRAM, QW (10 MG/KG, BIW)
     Route: 065
     Dates: start: 20220902, end: 20220915
  42. ISATUXIMAB [Suspect]
     Active Substance: ISATUXIMAB
     Dosage: 20 MILLIGRAM/KILOGRAM, QW (10 MG/KG, BIW)
     Route: 065
     Dates: start: 20220916, end: 20220920
  43. ISATUXIMAB [Suspect]
     Active Substance: ISATUXIMAB
     Dosage: 20 MILLIGRAM/KILOGRAM, QW (10 MG/KG, BIW)
     Route: 065
     Dates: start: 20220921, end: 20221004
  44. ISATUXIMAB [Suspect]
     Active Substance: ISATUXIMAB
     Dosage: 20 MILLIGRAM/KILOGRAM, QW (10 MG/KG, BIW)
     Route: 065
     Dates: start: 20221005, end: 20221101
  45. ISATUXIMAB [Suspect]
     Active Substance: ISATUXIMAB
     Dosage: 20 MILLIGRAM/KILOGRAM, QW (10 MG/KG, BIW)
     Route: 065
     Dates: start: 20221109, end: 20221206
  46. ISATUXIMAB [Suspect]
     Active Substance: ISATUXIMAB
     Dosage: 20 MILLIGRAM/KILOGRAM, QW (10 MG/KG, BIW)
     Route: 065
     Dates: start: 20221207, end: 20230103
  47. ISATUXIMAB [Suspect]
     Active Substance: ISATUXIMAB
     Dosage: 20 MILLIGRAM/KILOGRAM, QW (10 MG/KG, BIW)
     Route: 065
     Dates: start: 20230104, end: 20230131
  48. ISATUXIMAB [Suspect]
     Active Substance: ISATUXIMAB
     Dosage: 20 MILLIGRAM/KILOGRAM, QW (10 MG/KG, BIW)
     Route: 065
     Dates: start: 20230201, end: 20230228
  49. ISATUXIMAB [Suspect]
     Active Substance: ISATUXIMAB
     Dosage: 20 MILLIGRAM/KILOGRAM, QW (10 MG/KG, BIW)
     Route: 065
     Dates: start: 20230301, end: 20230328
  50. ISATUXIMAB [Suspect]
     Active Substance: ISATUXIMAB
     Dosage: 20 MILLIGRAM/KILOGRAM, QW (10 MG/KG, BIW)
     Route: 065
     Dates: start: 20230405, end: 20230502
  51. ISATUXIMAB [Suspect]
     Active Substance: ISATUXIMAB
     Dosage: UNK
     Route: 065
  52. LOVENOX [Concomitant]
     Active Substance: ENOXAPARIN SODIUM
     Indication: Thrombosis prophylaxis
     Dosage: UNK
     Route: 065
     Dates: start: 20190902, end: 20220412
  53. VALACYCLOVIR HYDROCHLORIDE [Concomitant]
     Active Substance: VALACYCLOVIR HYDROCHLORIDE
     Indication: Antiviral prophylaxis
     Dosage: UNK
     Route: 065
     Dates: start: 20190902
  54. COVID-19 vaccine [Concomitant]
     Indication: Immunisation
     Dosage: UNK
     Route: 065
     Dates: start: 202211, end: 202211
  55. COVID-19 vaccine [Concomitant]
     Dosage: UNK
     Route: 065
     Dates: start: 20220413, end: 20220413
  56. ELIQUIS [Concomitant]
     Active Substance: APIXABAN
     Indication: Thrombosis prophylaxis
     Dosage: UNK
     Route: 065
     Dates: start: 20220413
  57. PANTOPRAZOLE [Concomitant]
     Active Substance: PANTOPRAZOLE
     Indication: Prophylaxis
     Dosage: UNK
     Route: 065
     Dates: start: 20230316, end: 20230427
  58. DEXCHLORPHENIRAMINE [Concomitant]
     Active Substance: DEXCHLORPHENIRAMINE
     Indication: Prophylaxis
     Dosage: UNK
     Route: 065
     Dates: start: 20230316, end: 20230427
  59. AMOXICILLIN [Concomitant]
     Active Substance: AMOXICILLIN
     Dosage: UNK
     Route: 065
     Dates: start: 20230326, end: 20230404
  60. INFLUENZA VIRUS VACCINE [Concomitant]
     Active Substance: INFLUENZA VIRUS VACCINE
     Dosage: UNK
     Route: 065
     Dates: start: 202211, end: 202211
  61. ACETAMINOPHEN [Concomitant]
     Active Substance: ACETAMINOPHEN
     Indication: Hyperthermia
     Dosage: UNK
     Route: 065
     Dates: start: 20230316, end: 20230427

REACTIONS (4)
  - Neutropenia [Recovered/Resolved]
  - Infusion related reaction [Recovered/Resolved]
  - Abdominal pain upper [Recovered/Resolved]
  - Tooth infection [Recovered/Resolved]

NARRATIVE: CASE EVENT DATE: 20220316
